FAERS Safety Report 8925043 (Version 3)
Quarter: 2013Q1

REPORT INFORMATION
  Report Type: Spontaneous
  Country: US (occurrence: US)
  Receive Date: 20121126
  Receipt Date: 20130211
  Transmission Date: 20140127
  Serious: Yes (Death, Other)
  Sender: FDA-Public Use
  Company Number: US-ASTELLAS-2012US011353

PATIENT
  Age: 75 Year
  Sex: Male

DRUGS (1)
  1. VESICARE [Suspect]
     Indication: POLLAKIURIA
     Dosage: 10 MG, UID/QD
     Route: 048
     Dates: start: 20120124

REACTIONS (3)
  - Dementia [Fatal]
  - Aphagia [Fatal]
  - Hospice care [Unknown]
